FAERS Safety Report 24162675 (Version 1)
Quarter: 2024Q3

REPORT INFORMATION
  Report Type: Spontaneous
  Country: US (occurrence: US)
  Receive Date: 20240801
  Receipt Date: 20240801
  Transmission Date: 20241016
  Serious: No
  Sender: ABBVIE
  Company Number: US-ABBVIE-5860040

PATIENT
  Sex: Female

DRUGS (1)
  1. SYNTHROID [Suspect]
     Active Substance: LEVOTHYROXINE SODIUM
     Indication: Graves^ disease
     Route: 065

REACTIONS (6)
  - Illness [Unknown]
  - Autoimmune disorder [Unknown]
  - Nausea [Unknown]
  - Idiopathic environmental intolerance [Unknown]
  - Inflammation [Unknown]
  - Acne [Unknown]
